FAERS Safety Report 7710944-0 (Version None)
Quarter: 2011Q3

REPORT INFORMATION
  Report Type: 
  Country: None (occurrence: None)
  Receive Date: 20110825
  Receipt Date: 20110824
  Transmission Date: 20111222
  Serious: Yes (Other)
  Sender: FDA-Public Use
  Company Number: US-MERCK-1108USA03027

PATIENT
  Age: 59 Year
  Sex: Male
  Weight: 66 kg

DRUGS (4)
  1. TOPROL-XL [Concomitant]
     Route: 065
  2. LIPITOR [Suspect]
     Indication: BLOOD CHOLESTEROL INCREASED
     Route: 048
     Dates: start: 20031201, end: 20060714
  3. BENICAR HCT [Concomitant]
     Route: 065
  4. ZETIA [Suspect]
     Route: 048

REACTIONS (9)
  - DYSPNOEA [None]
  - BALANCE DISORDER [None]
  - GASTRITIS [None]
  - ILEUS PARALYTIC [None]
  - MEMORY IMPAIRMENT [None]
  - COORDINATION ABNORMAL [None]
  - COLITIS [None]
  - PARALYSIS [None]
  - RENAL DISORDER [None]
